FAERS Safety Report 5086694-9 (Version None)
Quarter: 2006Q3

REPORT INFORMATION
  Report Type: 
  Country: None (occurrence: None)
  Receive Date: 20060823
  Receipt Date: 20060516
  Transmission Date: 20061208
  Serious: No
  Sender: FDA-Public Use
  Company Number: US-GLAXOSMITHKLINE-A0605809A

PATIENT
  Age: 54 Year
  Sex: Male

DRUGS (4)
  1. MALARONE [Suspect]
     Indication: MALARIA
     Dosage: 100MG PER DAY
     Route: 048
     Dates: start: 20060427
  2. LIPITOR [Concomitant]
  3. GEMFIBROZIL [Concomitant]
  4. ZOLOFT [Concomitant]

REACTIONS (3)
  - COUGH [None]
  - PHARYNGOLARYNGEAL PAIN [None]
  - POSTNASAL DRIP [None]
